FAERS Safety Report 6556846-7 (Version None)
Quarter: 2010Q1

REPORT INFORMATION
  Report Type: 
  Country: None (occurrence: None)
  Receive Date: 20100128
  Receipt Date: 20100122
  Transmission Date: 20100710
  Serious: Yes (Other)
  Sender: FDA-Public Use
  Company Number: PHHY2009DE58522

PATIENT
  Sex: Female

DRUGS (1)
  1. FEMARA [Suspect]
     Dosage: 2.5 MG, UNK
     Route: 048
     Dates: start: 20091209

REACTIONS (6)
  - CATARACT [None]
  - DIARRHOEA [None]
  - GLAUCOMA [None]
  - MACULOPATHY [None]
  - NAUSEA [None]
  - VISION BLURRED [None]
